FAERS Safety Report 12687852 (Version 1)
Quarter: 2016Q3

REPORT INFORMATION
  Report Type: Spontaneous
  Country: IN (occurrence: IN)
  Receive Date: 20160826
  Receipt Date: 20160826
  Transmission Date: 20161109
  Serious: Yes (Other)
  Sender: FDA-Public Use
  Company Number: IN-ACCORD-043384

PATIENT
  Age: 62 Year
  Sex: Male

DRUGS (3)
  1. IRINOTECAN [Suspect]
     Active Substance: IRINOTECAN
     Indication: BLADDER ADENOCARCINOMA STAGE UNSPECIFIED
     Dosage: FIRST CYCLE
  2. FLUOROURACIL. [Suspect]
     Active Substance: FLUOROURACIL
     Indication: BLADDER ADENOCARCINOMA STAGE UNSPECIFIED
     Dosage: FIRST CYCLE
  3. FOLINIC ACID [Suspect]
     Active Substance: LEUCOVORIN
     Indication: BLADDER ADENOCARCINOMA STAGE UNSPECIFIED
     Dosage: FIRST CYCLE

REACTIONS (1)
  - Intestinal obstruction [Unknown]
